FAERS Safety Report 4980340-8 (Version None)
Quarter: 2006Q2

REPORT INFORMATION
  Report Type: 
  Country: None (occurrence: None)
  Receive Date: 20060421
  Receipt Date: 20060421
  Transmission Date: 20061013
  Serious: No
  Sender: FDA-Public Use
  Company Number: None

PATIENT

DRUGS (1)
  1. DMAX SYRUP     DEXTROMETHORPHAN,  BY: GREAT SOUTHERN [Suspect]

REACTIONS (1)
  - MEDICATION ERROR [None]
